FAERS Safety Report 9901902 (Version 1)
Quarter: 2014Q1

REPORT INFORMATION
  Report Type: Spontaneous
  Country: US (occurrence: US)
  Receive Date: 20140217
  Receipt Date: 20140217
  Transmission Date: 20141002
  Serious: No
  Sender: FDA-Public Use
  Company Number: US-GILEAD-2011-0045663

PATIENT
  Sex: Female

DRUGS (1)
  1. LETAIRIS [Suspect]
     Indication: PRODUCT USED FOR UNKNOWN INDICATION
     Dosage: UNK
     Route: 048

REACTIONS (6)
  - Diarrhoea [Unknown]
  - Hypertension [Unknown]
  - Nausea [Unknown]
  - Dyspnoea [Unknown]
  - Oedema peripheral [Unknown]
  - Localised oedema [Unknown]
